FAERS Safety Report 26044740 (Version 2)
Quarter: 2025Q4

REPORT INFORMATION
  Report Type: Spontaneous
  Country: CH (occurrence: CH)
  Receive Date: 20251114
  Receipt Date: 20251231
  Transmission Date: 20260117
  Serious: Yes (Other)
  Sender: AMICUS THERAPEUTICS
  Company Number: CH-AMICUS THERAPEUTICS, INC.-AMI_4488

PATIENT
  Age: 58 Year
  Sex: Male
  Weight: 74 kg

DRUGS (2)
  1. POMBILITI [Suspect]
     Active Substance: CIPAGLUCOSIDASE ALFA-ATGA
     Indication: Glycogen storage disease type II
     Dosage: 1480 MILLIGRAM, Q2WK
     Route: 042
     Dates: start: 20250301
  2. OPFOLDA [Suspect]
     Active Substance: MIGLUSTAT
     Indication: Glycogen storage disease type II
     Dosage: 260 MILLIGRAM (4X 65 MG), Q2WK
     Route: 048
     Dates: start: 20250301

REACTIONS (5)
  - Proctitis [Not Recovered/Not Resolved]
  - Drug intolerance [Unknown]
  - Blood creatine phosphokinase increased [Recovering/Resolving]
  - Lymphopenia [Unknown]
  - Infusion related reaction [Unknown]

NARRATIVE: CASE EVENT DATE: 20250101
